FAERS Safety Report 26172102 (Version 1)
Quarter: 2025Q4

REPORT INFORMATION
  Report Type: Spontaneous
  Country: US (occurrence: US)
  Receive Date: 20251218
  Receipt Date: 20251218
  Transmission Date: 20260118
  Serious: No
  Sender: ABBVIE
  Company Number: US-ABBVIE-6583309

PATIENT
  Age: 32 Year
  Sex: Female
  Weight: 54.431 kg

DRUGS (4)
  1. LINZESS [Suspect]
     Active Substance: LINACLOTIDE
     Indication: Inflammatory bowel disease
     Route: 048
     Dates: start: 202512
  2. LINZESS [Suspect]
     Active Substance: LINACLOTIDE
     Indication: Inflammatory bowel disease
     Route: 048
     Dates: start: 2017, end: 2020
  3. MESALAMINE [Concomitant]
     Active Substance: MESALAMINE
     Indication: Inflammatory bowel disease
  4. LEVOTHYROXINE [Concomitant]
     Active Substance: LEVOTHYROXINE
     Indication: Thyroid disorder

REACTIONS (2)
  - Maternal exposure during pregnancy [Unknown]
  - Live birth [Unknown]
